FAERS Safety Report 6788138-5 (Version None)
Quarter: 2010Q2

REPORT INFORMATION
  Report Type: 
  Country: None (occurrence: None)
  Receive Date: 20100623
  Receipt Date: 20080123
  Transmission Date: 20101027
  Serious: Yes (Other)
  Sender: FDA-Public Use
  Company Number: US-PFIZER INC-2008007425

PATIENT
  Sex: Male

DRUGS (3)
  1. XALATAN [Suspect]
     Indication: GLAUCOMA
  2. VITAMIN B-12 [Concomitant]
     Indication: PERNICIOUS ANAEMIA
  3. DEMEROL [Concomitant]

REACTIONS (2)
  - ANGINA PECTORIS [None]
  - MYALGIA [None]
